FAERS Safety Report 7473991-2 (Version None)
Quarter: 2011Q2

REPORT INFORMATION
  Report Type: 
  Country: None (occurrence: None)
  Receive Date: 20110511
  Receipt Date: 20090202
  Transmission Date: 20111010
  Serious: Yes (Other)
  Sender: FDA-Public Use
  Company Number: US-BAYER-200922709NA

PATIENT
  Age: 51 Year
  Sex: Male
  Weight: 131 kg

DRUGS (13)
  1. SIMVASTATIN [Concomitant]
  2. COUMADIN [Concomitant]
     Dosage: UNK
     Dates: start: 20070901
  3. LISINOPRIL [Concomitant]
     Dosage: UNK
     Dates: start: 20050101
  4. ACETYLSALICYLIC ACID SRT [Concomitant]
     Dosage: UNK
     Dates: start: 20050101
  5. TRASYLOL [Suspect]
     Indication: AORTIC VALVE REPLACEMENT
     Dosage: 200 ML, LOADING DOSE
     Route: 042
     Dates: start: 20070920, end: 20070920
  6. TRASYLOL [Suspect]
     Indication: CORONARY ARTERY BYPASS
     Dosage: 50 ML/HOUR INFUSION
     Route: 042
     Dates: start: 20070920, end: 20070920
  7. METFORMIN HCL [Concomitant]
     Dates: start: 20060101
  8. ANCEF [Concomitant]
     Dosage: 1 G, UNK
     Route: 042
     Dates: start: 20070920, end: 20070920
  9. CEFUROXIME [Concomitant]
     Dosage: 1500 MG, UNK
     Route: 042
     Dates: start: 20070920, end: 20070920
  10. AMIODARONE HCL [Concomitant]
     Dosage: UNK
     Dates: start: 20070901
  11. HYDROCHLOROTHIAZIDE [Concomitant]
  12. TOPROL-XL [Concomitant]
     Dosage: UNK
     Dates: start: 20050101
  13. EPINEPHRINE [Concomitant]
     Dosage: 10 MCG
     Route: 042
     Dates: end: 20070920

REACTIONS (9)
  - RENAL INJURY [None]
  - RENAL FAILURE [None]
  - RENAL IMPAIRMENT [None]
  - UNEVALUABLE EVENT [None]
  - EMOTIONAL DISTRESS [None]
  - STRESS [None]
  - FEAR [None]
  - ANXIETY [None]
  - PAIN [None]
